FAERS Safety Report 9881225 (Version 1)
Quarter: 2014Q1

REPORT INFORMATION
  Report Type: Report from Study
  Country: US (occurrence: US)
  Receive Date: 20140207
  Receipt Date: 20140207
  Transmission Date: 20141002
  Serious: Yes (Hospitalization, Other)
  Sender: FDA-Public Use
  Company Number: US-NAPPMUNDI-USA-2014-0110929

PATIENT
  Age: 63 Year
  Sex: Female

DRUGS (2)
  1. OXY CR TAB [Suspect]
     Indication: LUNG NEOPLASM MALIGNANT
     Dosage: UNK
     Route: 048
     Dates: start: 201309
  2. OXY CR TAB [Suspect]
     Dosage: 20 MG, Q12H
     Route: 048
     Dates: start: 20131230

REACTIONS (3)
  - Central nervous system lesion [Not Recovered/Not Resolved]
  - Nausea [Recovered/Resolved]
  - Vomiting [Recovered/Resolved]
